FAERS Safety Report 6050416-5 (Version None)
Quarter: 2009Q1

REPORT INFORMATION
  Report Type: 
  Country: None (occurrence: None)
  Receive Date: 20090126
  Receipt Date: 20090120
  Transmission Date: 20090719
  Serious: Yes (Hospitalization)
  Sender: FDA-Public Use
  Company Number: JP-BAYER-200910172BYL

PATIENT
  Age: 91 Year
  Sex: Female

DRUGS (5)
  1. ASPIRIN [Suspect]
     Indication: ANGINA PECTORIS
     Dosage: TOTAL DAILY DOSE: 100 MG  UNIT DOSE: 100 MG
     Route: 048
     Dates: start: 20040201
  2. BUFFERIN [Suspect]
     Indication: ANGINA PECTORIS
     Dosage: TOTAL DAILY DOSE: 81 MG  UNIT DOSE: 81 MG
     Route: 048
     Dates: start: 20021001
  3. ZANTAC [Concomitant]
     Indication: DRUG USE FOR UNKNOWN INDICATION
     Route: 048
  4. MARZULENE [Concomitant]
     Indication: DRUG USE FOR UNKNOWN INDICATION
     Route: 048
  5. CONIEL [Concomitant]
     Indication: DRUG USE FOR UNKNOWN INDICATION
     Route: 048

REACTIONS (5)
  - APHASIA [None]
  - CEREBRAL INFARCTION [None]
  - HEMIPLEGIA [None]
  - MELAENA [None]
  - SMALL INTESTINAL HAEMORRHAGE [None]
